FAERS Safety Report 4977544-7 (Version None)
Quarter: 2006Q2

REPORT INFORMATION
  Report Type: 
  Country: None (occurrence: None)
  Receive Date: 20060414
  Receipt Date: 20060327
  Transmission Date: 20061013
  Serious: Yes (Hospitalization)
  Sender: FDA-Public Use
  Company Number: 223433

PATIENT
  Age: 55 Year
  Sex: Female

DRUGS (5)
  1. HERCEPTIN [Suspect]
     Indication: BREAST CANCER METASTATIC
     Dosage: 2 MG/KG, 1 WEEK
     Dates: start: 20060220
  2. VINFLUNINE (VINFLUNINE) [Suspect]
     Indication: BREAST CANCER METASTATIC
     Dosage: 320 MG/M2, Q3W, INTRAVENOUS
     Route: 042
     Dates: start: 20060220
  3. SOTALOL HCL [Concomitant]
  4. LEVOTHYROXINE SODIUM [Concomitant]
  5. FORLAX (POLYETHYLENE GLYCOL, POTASSIUM NOS, SODIUM BICARBONATE, SODIUM [Concomitant]

REACTIONS (8)
  - ABDOMINAL PAIN [None]
  - BACK PAIN [None]
  - BONE PAIN [None]
  - CONSTIPATION [None]
  - FATIGUE [None]
  - GENERAL PHYSICAL HEALTH DETERIORATION [None]
  - PAIN IN JAW [None]
  - SHOULDER PAIN [None]
